FAERS Safety Report 7405242 (Version 5)
Quarter: 2014Q3

REPORT INFORMATION
  Report Type: Spontaneous
  Country: JP (occurrence: JP)
  Receive Date: 20100601
  Receipt Date: 20140915
  Transmission Date: 20150326
  Serious: Yes (Hospitalization, Other)
  Sender: FDA-Public Use
  Company Number: PHHY2010JP24896

PATIENT
  Sex: Male
  Weight: 62 kg

DRUGS (14)
  1. MAXIPIME [Suspect]
     Active Substance: CEFEPIME HYDROCHLORIDE
     Dosage: UNK UKN, UNK
     Route: 042
     Dates: start: 20100327, end: 20100327
  2. GASPORT [Suspect]
     Active Substance: FAMOTIDINE
     Dosage: UNK UKN, UNK
     Route: 048
     Dates: start: 20100329, end: 20100411
  3. URSO [Concomitant]
     Active Substance: URSODIOL
     Dosage: 6DF DAILY
     Dates: start: 20100421
  4. EPINASTINE [Concomitant]
     Active Substance: EPINASTINE
     Indication: RASH
     Dosage: UNK UKN, UNK
     Route: 048
     Dates: start: 20100329, end: 20100404
  5. CEFDINIR. [Suspect]
     Active Substance: CEFDINIR
     Indication: TOOTH EXTRACTION
     Dosage: UNK UKN, UNK
     Route: 048
     Dates: start: 20100323, end: 20100328
  6. LOXOPROFEN [Concomitant]
     Active Substance: LOXOPROFEN
     Dosage: UNK UKN, UNK
     Route: 048
     Dates: start: 20100323, end: 20100401
  7. URSO [Concomitant]
     Active Substance: URSODIOL
     Dosage: UNK UKN, UNK
  8. IRSOGLADINE MALEATE [Suspect]
     Active Substance: IRSOGLADINE MALEATE
     Dosage: UNK UKN, UNK
     Route: 048
     Dates: start: 20100329, end: 20100411
  9. PENMALIN [Suspect]
     Active Substance: PIPERACILLIN SODIUM
     Indication: TOOTH EXTRACTION
     Dosage: UNK UKN, UNK
     Route: 042
     Dates: start: 20100427, end: 20100427
  10. GLIVEC [Suspect]
     Active Substance: IMATINIB MESYLATE
     Indication: CHRONIC MYELOID LEUKAEMIA
     Dosage: UNK UKN, UNK
     Route: 048
     Dates: start: 20100318, end: 20100330
  11. MYSLEE [Concomitant]
     Active Substance: ZOLPIDEM TARTRATE
     Indication: INSOMNIA
     Dosage: UNK UKN, UNK
     Route: 048
     Dates: start: 20100402, end: 20100412
  12. MEROPEN [Suspect]
     Active Substance: MEROPENEM
     Indication: PYREXIA
     Dosage: UNK UKN, UNK
     Route: 042
     Dates: start: 20100329, end: 20100405
  13. NAUZELIN [Suspect]
     Active Substance: DOMPERIDONE
     Dosage: UNK UKN, UNK
     Route: 048
     Dates: start: 20100329, end: 20100408
  14. KLARICID [Concomitant]
     Active Substance: CLARITHROMYCIN
     Indication: PYREXIA
     Dosage: UNK UKN, UNK
     Route: 048
     Dates: start: 20100327, end: 20100329

REACTIONS (11)
  - Aspartate aminotransferase increased [Recovered/Resolved]
  - Hypoaesthesia [Recovered/Resolved]
  - Abdominal pain upper [Recovering/Resolving]
  - Liver disorder [Not Recovered/Not Resolved]
  - Alanine aminotransferase increased [Recovered/Resolved]
  - Viral rash [Recovering/Resolving]
  - Pyrexia [Recovered/Resolved]
  - Nausea [Recovering/Resolving]
  - Toothache [Recovered/Resolved]
  - Insomnia [Recovering/Resolving]
  - Rash [Recovering/Resolving]
